FAERS Safety Report 8147047 (Version 9)
Quarter: 2013Q2

REPORT INFORMATION
  Report Type: Spontaneous
  Country: GB (occurrence: GB)
  Receive Date: 20110922
  Receipt Date: 20130404
  Transmission Date: 20140414
  Serious: Yes (Hospitalization, Other)
  Sender: FDA-Public Use
  Company Number: GB-BIOGENIDEC-2011BI035611

PATIENT
  Age: 34 Year
  Sex: Female
  Weight: 50 kg

DRUGS (3)
  1. TYSABRI [Suspect]
     Indication: MULTIPLE SCLEROSIS
     Route: 042
     Dates: start: 20080604, end: 20110803
  2. BACLOFEN [Concomitant]
     Indication: MUSCLE SPASTICITY
     Route: 048
  3. CITALOPRAM [Concomitant]
     Indication: DEPRESSED MOOD
     Route: 048

REACTIONS (1)
  - Herpes simplex encephalitis [Recovered/Resolved]
